FAERS Safety Report 7867939-6 (Version None)
Quarter: 2011Q4

REPORT INFORMATION
  Report Type: 
  Country: None (occurrence: None)
  Receive Date: 20111028
  Receipt Date: 20111019
  Transmission Date: 20120403
  Serious: Yes (Hospitalization, Disabling, Other)
  Sender: FDA-Public Use
  Company Number: RU-ASTRAZENECA-2011SE63185

PATIENT
  Age: 43 Year
  Sex: Female

DRUGS (1)
  1. EMLA [Suspect]
     Indication: ANAESTHESIA
     Dosage: ONCE/SINGLE ADMINISTRATION
     Route: 061
     Dates: start: 20110602

REACTIONS (5)
  - KERATITIS [None]
  - HYPERSENSITIVITY [None]
  - CYCLITIS [None]
  - UVEITIS [None]
  - COUNTERFEIT DRUG ADMINISTERED [None]
